FAERS Safety Report 6900714-5 (Version None)
Quarter: 2010Q3

REPORT INFORMATION
  Report Type: 
  Country: None (occurrence: None)
  Receive Date: 20100730
  Receipt Date: 20100717
  Transmission Date: 20110219
  Serious: Yes (Hospitalization, Other)
  Sender: FDA-Public Use
  Company Number: 2010AP001468

PATIENT
  Age: 46 Year
  Sex: Male

DRUGS (2)
  1. CIPROFLOXACIN HYDROCHLORIDE [Suspect]
     Indication: MYCOBACTERIUM ULCERANS INFECTION
     Dosage: 500 MG; BID
  2. RIFAMPICIN [Suspect]
     Indication: MYCOBACTERIUM ULCERANS INFECTION
     Dosage: 300 MG; BID

REACTIONS (6)
  - DISEASE PROGRESSION [None]
  - ERYTHEMA [None]
  - JOINT SWELLING [None]
  - MYCOBACTERIUM ULCERANS INFECTION [None]
  - PARADOXICAL DRUG REACTION [None]
  - SKIN LESION [None]
